FAERS Safety Report 13374265 (Version 2)
Quarter: 2017Q2

REPORT INFORMATION
  Report Type: Spontaneous
  Country: US (occurrence: US)
  Receive Date: 20170327
  Receipt Date: 20170627
  Transmission Date: 20170830
  Serious: No
  Sender: FDA-Public Use
  Company Number: US-TAIHO ONCOLOGY INC-EU-2017-00494

PATIENT
  Age: 70 Year
  Sex: Female

DRUGS (8)
  1. LONSURF [Suspect]
     Active Substance: TIPIRACIL HYDROCHLORIDE\TRIFLURIDINE
     Indication: COLON CANCER
     Dosage: 40 MG QAM, 60 MG QPM
     Route: 048
     Dates: start: 20160903, end: 2017
  2. IBUPROFEN. [Concomitant]
     Active Substance: IBUPROFEN
     Dosage: NI
  3. XARELTO [Concomitant]
     Active Substance: RIVAROXABAN
     Dosage: NI
  4. SODIUM BICARBONATE. [Concomitant]
     Active Substance: SODIUM BICARBONATE
     Dosage: NI
  5. TRAMADOL HYDROCHLORIDE. [Concomitant]
     Active Substance: TRAMADOL HYDROCHLORIDE
     Dosage: NI
  6. LORAZEPAM. [Concomitant]
     Active Substance: LORAZEPAM
     Dosage: NI
  7. POTASSIUM CHLORIDE. [Concomitant]
     Active Substance: POTASSIUM CHLORIDE
     Dosage: NI
  8. DEXAMETHASONE. [Concomitant]
     Active Substance: DEXAMETHASONE
     Dosage: NI

REACTIONS (1)
  - Disease progression [Unknown]

NARRATIVE: CASE EVENT DATE: 20170412
